FAERS Safety Report 23573177 (Version 3)
Quarter: 2024Q2

REPORT INFORMATION
  Report Type: Spontaneous
  Country: JP (occurrence: JP)
  Receive Date: 20240228
  Receipt Date: 20240415
  Transmission Date: 20240715
  Serious: Yes (Other)
  Sender: FDA-Public Use
  Company Number: JP-KYOWAKIRIN-2024KK002673

PATIENT
  Age: 43 Year
  Sex: Female

DRUGS (7)
  1. PEGFILGRASTIM [Suspect]
     Active Substance: PEGFILGRASTIM
     Indication: Colony stimulating factor therapy
     Dosage: 3.6 MG, SINGLE
     Route: 058
     Dates: start: 20221007, end: 20221007
  2. PEGFILGRASTIM [Suspect]
     Active Substance: PEGFILGRASTIM
     Dosage: 3.6 MG, SINGLE
     Route: 058
     Dates: start: 20221110, end: 20221110
  3. PEGFILGRASTIM [Suspect]
     Active Substance: PEGFILGRASTIM
     Dosage: 3.6 MG, SINGLE
     Route: 058
     Dates: start: 20221202
  4. EPIRUBICIN HYDROCHLORIDE [Concomitant]
     Active Substance: EPIRUBICIN HYDROCHLORIDE
     Indication: Breast cancer
     Dosage: UNK, SINGLE
     Route: 065
     Dates: start: 20220915, end: 20220915
  5. EPIRUBICIN HYDROCHLORIDE [Concomitant]
     Active Substance: EPIRUBICIN HYDROCHLORIDE
     Dosage: UNK, SINGLE
     Route: 065
     Dates: start: 20221006, end: 20221006
  6. CYCLOPHOSPHAMIDE [Concomitant]
     Active Substance: CYCLOPHOSPHAMIDE
     Indication: Breast cancer
     Dosage: UNK, SINGLE
     Route: 065
     Dates: start: 20220915, end: 20220915
  7. CYCLOPHOSPHAMIDE [Concomitant]
     Active Substance: CYCLOPHOSPHAMIDE
     Dosage: UNK, SINGLE
     Route: 065
     Dates: start: 20221006, end: 20221006

REACTIONS (3)
  - Pyoderma [Recovered/Resolved]
  - Chemotherapy [Unknown]
  - Off label use [Unknown]

NARRATIVE: CASE EVENT DATE: 20221007
